FAERS Safety Report 15400767 (Version 1)
Quarter: 2018Q3

REPORT INFORMATION
  Report Type: Spontaneous
  Country: BR (occurrence: BR)
  Receive Date: 20180919
  Receipt Date: 20180919
  Transmission Date: 20181010
  Serious: Yes (Hospitalization)
  Sender: FDA-Public Use
  Company Number: BR-ABBVIE-18P-020-2362607-00

PATIENT
  Age: 20 Year
  Sex: Male

DRUGS (5)
  1. DEPAKOTE ER [Suspect]
     Active Substance: DIVALPROEX SODIUM
     Indication: ANXIETY
     Dosage: DAILY DOSE:3 TABLET; (1 TABLET AT 07:00 A.M. / 03:00 P.M. / 11:00 P.M).
     Route: 048
     Dates: start: 201608
  2. AMPLICTIL [Concomitant]
     Active Substance: CHLORPROMAZINE HYDROCHLORIDE
     Indication: SLEEP DISORDER THERAPY
     Dosage: 2 TABLET; AT NIGHT
     Route: 048
     Dates: start: 201802
  3. EXODUS [Concomitant]
     Indication: ANTIDEPRESSANT THERAPY
     Dosage: 1 TABLET; IN THE MORNING
     Route: 048
  4. AMPLICTIL [Concomitant]
     Active Substance: CHLORPROMAZINE HYDROCHLORIDE
     Indication: SEDATIVE THERAPY
     Dosage: 4 TABLET AT NIGHT
  5. DIVALCON ER [Suspect]
     Active Substance: DIVALPROEX SODIUM
     Indication: ANXIETY
     Dosage: DAILY DOSE: 2 TABLET (1 TABLET IN THE MORNING/AT NIGHT)
     Route: 048
     Dates: start: 201708, end: 201712

REACTIONS (8)
  - Suicide attempt [Unknown]
  - Treatment noncompliance [Recovered/Resolved]
  - Anxiety [Unknown]
  - Food refusal [Unknown]
  - Inappropriate schedule of drug administration [Unknown]
  - Vomiting [Unknown]
  - Product storage error [Unknown]
  - Weight decreased [Recovering/Resolving]

NARRATIVE: CASE EVENT DATE: 2017
